FAERS Safety Report 9903189 (Version 1)
Quarter: 2014Q1

REPORT INFORMATION
  Report Type: Spontaneous
  Country: US (occurrence: US)
  Receive Date: 20140217
  Receipt Date: 20140217
  Transmission Date: 20141002
  Serious: No
  Sender: FDA-Public Use
  Company Number: US-ASTRAZENECA-2013SE76914

PATIENT
  Age: 80 Year
  Sex: Female

DRUGS (3)
  1. ATENOLOL [Suspect]
     Indication: BLOOD PRESSURE
     Dosage: GENERIC
     Route: 048
     Dates: start: 2010, end: 2010
  2. ATENOLOL [Suspect]
     Indication: BLOOD PRESSURE
     Route: 048
  3. NORVASC [Concomitant]

REACTIONS (1)
  - Blood pressure increased [Recovered/Resolved]
